FAERS Safety Report 23898219 (Version 1)
Quarter: 2024Q2

REPORT INFORMATION
  Report Type: Spontaneous
  Country: US (occurrence: US)
  Receive Date: 20240524
  Receipt Date: 20240524
  Transmission Date: 20240715
  Serious: Yes (Other)
  Sender: FDA-Public Use
  Company Number: US-ORGANON-O2405USA000156

PATIENT
  Age: 38 Year
  Sex: Female
  Weight: 106 kg

DRUGS (2)
  1. NEXPLANON [Suspect]
     Active Substance: ETONOGESTREL
     Indication: Contraception
     Dosage: 1 IMPLANT (LEFT UPPER ARM)
     Route: 059
     Dates: start: 20201102
  2. NEXPLANON [Concomitant]
     Active Substance: ETONOGESTREL
     Dosage: 1 DOSAGE FORM
     Route: 059
     Dates: start: 20171103, end: 20201102

REACTIONS (6)
  - Device dislocation [Not Recovered/Not Resolved]
  - Implant site erythema [Unknown]
  - Implant site pain [Unknown]
  - Implant site cellulitis [Unknown]
  - Complication associated with device [Not Recovered/Not Resolved]
  - Incorrect product administration duration [Unknown]

NARRATIVE: CASE EVENT DATE: 20201101
